FAERS Safety Report 6316872-X (Version None)
Quarter: 2009Q3

REPORT INFORMATION
  Report Type: 
  Country: None (occurrence: None)
  Receive Date: 20090820
  Receipt Date: 20090810
  Transmission Date: 20100115
  Serious: Yes (Disabling, Other)
  Sender: FDA-Public Use
  Company Number: ES-ELI_LILLY_AND_COMPANY-ES200906002265

PATIENT
  Age: 47 Year
  Sex: Female

DRUGS (4)
  1. ZYPREXA [Suspect]
     Indication: BIPOLAR DISORDER
     Dosage: 10 MG, UNK
     Route: 048
  2. ZYPREXA [Suspect]
     Dosage: 2.5 MG, UNK
     Route: 048
  3. LEVOTHROID [Concomitant]
     Indication: HYPOTHYROIDISM
  4. LAMICTAL [Concomitant]

REACTIONS (2)
  - BLINDNESS [None]
  - OPTIC NEURITIS [None]
